FAERS Safety Report 5326419-2 (Version None)
Quarter: 2007Q2

REPORT INFORMATION
  Report Type: 
  Country: None (occurrence: None)
  Receive Date: 20070516
  Receipt Date: 20070507
  Transmission Date: 20071010
  Serious: Yes (Other)
  Sender: FDA-Public Use
  Company Number: US-JNJFOC-20070501803

PATIENT
  Sex: Female
  Weight: 121 kg

DRUGS (4)
  1. PREZISTA [Suspect]
     Indication: ACQUIRED IMMUNODEFICIENCY SYNDROME
     Route: 048
  2. NORVIR [Concomitant]
     Indication: ACQUIRED IMMUNODEFICIENCY SYNDROME
     Route: 065
  3. EPZICOM [Concomitant]
     Route: 065
  4. VIREAD [Concomitant]
     Route: 065

REACTIONS (2)
  - ANGIOEDEMA [None]
  - RASH [None]
